FAERS Safety Report 8828041 (Version 1)
Quarter: 2012Q4

REPORT INFORMATION
  Report Type: 
  Country: US (occurrence: US)
  Receive Date: 20121005
  Receipt Date: 20121005
  Transmission Date: 20130627
  Serious: Yes (Hospitalization)
  Sender: FDA-Public Use
  Company Number: US-ROXANE LABORATORIES, INC.-2012-RO-01932RO

PATIENT
  Age: 46 Year
  Sex: Female
  Weight: 40 kg

DRUGS (3)
  1. LEVETIRACETAM [Suspect]
     Indication: CONVULSION
  2. PHENOBARBITAL [Suspect]
     Indication: CONVULSION
  3. PHENYTOIN [Suspect]
     Indication: CONVULSION

REACTIONS (1)
  - Disease progression [Recovered/Resolved]
